FAERS Safety Report 18942665 (Version 1)
Quarter: 2021Q1

REPORT INFORMATION
  Report Type: Spontaneous
  Country: RS (occurrence: RS)
  Receive Date: 20210225
  Receipt Date: 20210225
  Transmission Date: 20210420
  Serious: Yes (Death, Life-Threatening, Other)
  Sender: FDA-Public Use
  Company Number: RS-PURDUE-USA-2021-0217093

PATIENT
  Age: 27 Year
  Sex: Male

DRUGS (4)
  1. NON?PMN MORPHINE SULFATE [Suspect]
     Active Substance: MORPHINE SULFATE
     Indication: PRODUCT USED FOR UNKNOWN INDICATION
     Dosage: UNK
     Route: 065
  2. IBOGAINE [Interacting]
     Active Substance: IBOGAINE
     Indication: DRUG DETOXIFICATION
     Dosage: UNK
     Route: 048
  3. CODEINE [Suspect]
     Active Substance: CODEINE
     Indication: PRODUCT USED FOR UNKNOWN INDICATION
     Dosage: UNK
     Route: 065
  4. HEROIN [Suspect]
     Active Substance: DIAMORPHINE
     Indication: PRODUCT USED FOR UNKNOWN INDICATION
     Dosage: UNK
     Route: 065

REACTIONS (8)
  - Toxicity to various agents [Fatal]
  - Potentiating drug interaction [Unknown]
  - Acute lung injury [Unknown]
  - Drug abuse [Unknown]
  - Drug-induced liver injury [Unknown]
  - Heart injury [Unknown]
  - Visceral congestion [Unknown]
  - Pulmonary oedema [Unknown]
